FAERS Safety Report 21355946 (Version 1)
Quarter: 2022Q3

REPORT INFORMATION
  Report Type: Spontaneous
  Country: US (occurrence: US)
  Receive Date: 20220920
  Receipt Date: 20220920
  Transmission Date: 20221027
  Serious: Yes (Death, Hospitalization)
  Sender: FDA-Public Use
  Company Number: US-AMERICAN REGENT INC-2022002746

PATIENT
  Age: 53 Year
  Sex: Male

DRUGS (10)
  1. FOMEPIZOLE [Suspect]
     Active Substance: FOMEPIZOLE
     Indication: Alcohol poisoning
     Dosage: UNK
     Route: 065
     Dates: start: 202006, end: 2020
  2. LEUCOVORIN CALCIUM [Suspect]
     Active Substance: LEUCOVORIN CALCIUM
     Indication: Alcohol poisoning
     Dosage: UNK
     Route: 065
     Dates: start: 202006, end: 2020
  3. FOLIC ACID [Suspect]
     Active Substance: FOLIC ACID
     Indication: Alcohol poisoning
     Dosage: UNK
     Route: 065
     Dates: start: 202006, end: 202006
  4. THIAMINE [Suspect]
     Active Substance: THIAMINE
     Indication: Alcohol poisoning
     Dosage: UNK
     Route: 065
     Dates: start: 202006, end: 2020
  5. PYRIDOXINE [Suspect]
     Active Substance: PYRIDOXINE
     Indication: Alcohol poisoning
     Dosage: UNK
     Route: 065
     Dates: start: 202006, end: 2020
  6. SODIUM BICARBONATE [Suspect]
     Active Substance: SODIUM BICARBONATE
     Indication: Metabolic acidosis
     Dosage: UNK
     Route: 065
     Dates: start: 202006, end: 2020
  7. METHYL ALCOHOL [Concomitant]
     Active Substance: METHYL ALCOHOL
     Indication: Intentional product misuse
     Dosage: UNK
     Route: 048
     Dates: start: 202006, end: 202006
  8. METHYL ALCOHOL [Concomitant]
     Active Substance: METHYL ALCOHOL
     Indication: Alcohol abuse
  9. ALCOHOL [Concomitant]
     Active Substance: ALCOHOL
     Indication: Intentional product misuse
     Dosage: UNK
     Route: 048
     Dates: start: 202006, end: 202006
  10. ALCOHOL [Concomitant]
     Active Substance: ALCOHOL
     Indication: Alcohol abuse

REACTIONS (3)
  - Drug ineffective [Fatal]
  - Alcohol poisoning [Fatal]
  - Product use in unapproved indication [Unknown]

NARRATIVE: CASE EVENT DATE: 20200601
